FAERS Safety Report 20670193 (Version 20)
Quarter: 2024Q1

REPORT INFORMATION
  Report Type: Spontaneous
  Country: GB (occurrence: GB)
  Receive Date: 20220404
  Receipt Date: 20240213
  Transmission Date: 20240409
  Serious: Yes (Hospitalization, Other)
  Sender: FDA-Public Use
  Company Number: GB-MYLANLABS-2022M1024048

PATIENT
  Age: 55 Year
  Sex: Male

DRUGS (4)
  1. CLOZARIL [Suspect]
     Active Substance: CLOZAPINE
     Indication: Schizophrenia
     Dosage: UNK
     Route: 048
     Dates: start: 20051125
  2. GEMTUZUMAB OZOGAMICIN [Concomitant]
     Active Substance: GEMTUZUMAB OZOGAMICIN
     Dosage: 5 MILLIGRAM
     Route: 042
  3. DAUNORUBICIN [Concomitant]
     Active Substance: DAUNORUBICIN
     Dosage: 142.5 MILLIGRAM
     Route: 042
  4. CYTARABINE [Concomitant]
     Active Substance: CYTARABINE
     Dosage: 480 MILLIGRAM
     Route: 065

REACTIONS (9)
  - Neutropenia [Recovered/Resolved]
  - White blood cell count decreased [Recovering/Resolving]
  - Platelet count decreased [Not Recovered/Not Resolved]
  - Chloroma [Unknown]
  - Off label use [Unknown]
  - Mean cell haemoglobin increased [Unknown]
  - Mean cell haemoglobin concentration increased [Unknown]
  - Red blood cell count decreased [Unknown]
  - Haematocrit decreased [Unknown]

NARRATIVE: CASE EVENT DATE: 20220101
